FAERS Safety Report 11678944 (Version 1)
Quarter: 2015Q4

REPORT INFORMATION
  Report Type: Spontaneous
  Country: US (occurrence: US)
  Receive Date: 20151028
  Receipt Date: 20151028
  Transmission Date: 20160304
  Serious: No
  Sender: FDA-Public Use
  Company Number: US-GLAXOSMITHKLINE-US2015153902

PATIENT
  Age: 60 Year
  Sex: Female

DRUGS (20)
  1. ZETIA [Concomitant]
     Active Substance: EZETIMIBE
  2. VITAMIN E [Concomitant]
     Active Substance: .ALPHA.-TOCOPHEROL
  3. LASIX [Concomitant]
     Active Substance: FUROSEMIDE
  4. ASPIRIN. [Concomitant]
     Active Substance: ASPIRIN
  5. CELLCEPT [Concomitant]
     Active Substance: MYCOPHENOLATE MOFETIL\MYCOPHENOLATE MOFETIL HYDROCHLORIDE
  6. CLONIDINE. [Concomitant]
     Active Substance: CLONIDINE
  7. GABAPENTIN. [Concomitant]
     Active Substance: GABAPENTIN
  8. ULORIC [Concomitant]
     Active Substance: FEBUXOSTAT
  9. VITAMIN C [Concomitant]
     Active Substance: ASCORBIC ACID
  10. CETIRIZINE [Concomitant]
     Active Substance: CETIRIZINE HYDROCHLORIDE
  11. IRON [Concomitant]
     Active Substance: IRON
  12. LANSOPRAZOLE. [Concomitant]
     Active Substance: LANSOPRAZOLE
  13. MAG 64 [Concomitant]
  14. TANZEUM [Suspect]
     Active Substance: ALBIGLUTIDE
     Indication: DIABETES MELLITUS
     Dosage: 50MG
     Route: 042
     Dates: start: 20151008
  15. HUMALOG [Concomitant]
     Active Substance: INSULIN LISPRO
  16. LANTUS [Concomitant]
     Active Substance: INSULIN GLARGINE
  17. FISH OIL [Concomitant]
     Active Substance: FISH OIL
  18. FENOFIBRATE. [Concomitant]
     Active Substance: FENOFIBRATE
  19. VALSARTAN. [Concomitant]
     Active Substance: VALSARTAN
  20. PROGRAFT [Concomitant]
     Active Substance: TACROLIMUS

REACTIONS (7)
  - Decreased appetite [Unknown]
  - Headache [Recovered/Resolved]
  - Feeling drunk [Unknown]
  - Dizziness [Unknown]
  - Drug interaction [Unknown]
  - Blood glucose increased [Unknown]
  - Dysarthria [Unknown]

NARRATIVE: CASE EVENT DATE: 20151009
